FAERS Safety Report 19511248 (Version 9)
Quarter: 2022Q1

REPORT INFORMATION
  Report Type: Report from Study
  Country: FR (occurrence: FR)
  Receive Date: 20210709
  Receipt Date: 20220111
  Transmission Date: 20220424
  Serious: Yes (Hospitalization)
  Sender: FDA-Public Use
  Company Number: NVSC2021FR150334

PATIENT
  Age: 73 Year
  Sex: Male
  Weight: 104 kg

DRUGS (13)
  1. NAPORAFENIB [Suspect]
     Active Substance: NAPORAFENIB
     Indication: Malignant melanoma
     Dosage: 400 MG, BID
     Route: 048
     Dates: start: 20210407, end: 20210623
  2. TRAMETINIB [Suspect]
     Active Substance: TRAMETINIB
     Indication: Malignant melanoma
     Dosage: 0.5 MG, QD
     Route: 048
     Dates: start: 20210407, end: 20210623
  3. COSMETICS [Concomitant]
     Active Substance: COSMETICS
     Indication: Xerosis
     Dosage: UNK
     Route: 065
     Dates: start: 20210407
  4. COSMETICS [Concomitant]
     Active Substance: COSMETICS
     Indication: Folliculitis
  5. MAGNESIUM OXIDE\PYRIDOXINE HYDROCHLORIDE [Concomitant]
     Active Substance: MAGNESIUM OXIDE\PYRIDOXINE HYDROCHLORIDE
     Indication: Blood magnesium decreased
     Dosage: UNK
     Route: 065
     Dates: start: 20210421
  6. POLYETHYLENE GLYCOLS [Concomitant]
     Active Substance: POLYETHYLENE GLYCOLS
     Indication: Constipation
     Dosage: UNK
     Route: 065
     Dates: start: 20210525
  7. GLICLAZIDE [Concomitant]
     Active Substance: GLICLAZIDE
     Indication: Type 2 diabetes mellitus
     Dosage: UNK
     Route: 065
     Dates: start: 2000
  8. METFORMIN HYDROCHLORIDE\VILDAGLIPTIN [Concomitant]
     Active Substance: METFORMIN HYDROCHLORIDE\VILDAGLIPTIN
     Indication: Type 2 diabetes mellitus
     Dosage: UNK
     Route: 065
     Dates: start: 2000
  9. METFORMIN HYDROCHLORIDE [Concomitant]
     Active Substance: METFORMIN HYDROCHLORIDE
     Indication: Type 2 diabetes mellitus
     Dosage: UNK
     Route: 065
     Dates: start: 2000, end: 202107
  10. KARDEGIC [Concomitant]
     Active Substance: ASPIRIN DL-LYSINE
     Indication: Prophylaxis
     Dosage: UNK
     Route: 065
     Dates: start: 2000
  11. LYRICA [Concomitant]
     Active Substance: PREGABALIN
     Indication: Pain in extremity
     Dosage: UNK
     Route: 065
     Dates: start: 2000
  12. TRULICITY [Concomitant]
     Active Substance: DULAGLUTIDE
     Indication: Type 2 diabetes mellitus
     Dosage: UNK
     Route: 065
     Dates: start: 2000, end: 202107
  13. PRIMPERAN [Concomitant]
     Active Substance: METOCLOPRAMIDE HYDROCHLORIDE
     Indication: Nausea
     Dosage: UNK
     Route: 065
     Dates: start: 20210415

REACTIONS (10)
  - Skin fissures [Not Recovered/Not Resolved]
  - Decreased appetite [Not Recovered/Not Resolved]
  - Folliculitis [Recovered/Resolved]
  - Asthenia [Recovered/Resolved]
  - General physical health deterioration [Not Recovered/Not Resolved]
  - Inappropriate antidiuretic hormone secretion [Not Recovered/Not Resolved]
  - Oxygen saturation decreased [Recovered/Resolved]
  - Haematochezia [Not Recovered/Not Resolved]
  - Urinary tract infection [Not Recovered/Not Resolved]
  - Pyrexia [Not Recovered/Not Resolved]

NARRATIVE: CASE EVENT DATE: 20210421
